FAERS Safety Report 17811367 (Version 1)
Quarter: 2020Q2

REPORT INFORMATION
  Report Type: Spontaneous
  Country: NO (occurrence: NO)
  Receive Date: 20200521
  Receipt Date: 20200521
  Transmission Date: 20200714
  Serious: Yes (Death)
  Sender: FDA-Public Use
  Company Number: NO-MYLANLABS-2019M1106317

PATIENT
  Sex: Male

DRUGS (9)
  1. LEPONEX [Suspect]
     Active Substance: CLOZAPINE
     Indication: PSYCHOTIC DISORDER DUE TO A GENERAL MEDICAL CONDITION
     Dosage: 75 MILLIGRAM
     Dates: start: 201908
  2. REMERON [Concomitant]
     Active Substance: MIRTAZAPINE
     Dosage: UNK
  3. APODORM [Concomitant]
     Active Substance: NITRAZEPAM
     Dosage: UNK
  4. SANDOZ QUETIAPINE [Concomitant]
     Dosage: UNK
  5. LEPONEX [Suspect]
     Active Substance: CLOZAPINE
     Dosage: UNK
     Dates: start: 2019
  6. CIRCADIN [Concomitant]
     Active Substance: MELATONIN
     Dosage: UNK
  7. VALIUM [Concomitant]
     Active Substance: DIAZEPAM
     Dosage: UNK
  8. VALLERGAN [Concomitant]
     Active Substance: TRIMEPRAZINE
     Dosage: UNK
  9. MELATONIN [Concomitant]
     Active Substance: MELATONIN
     Dosage: 2 MILLIGRAM

REACTIONS (5)
  - Death [Fatal]
  - Oesophageal discomfort [Unknown]
  - Fatigue [Unknown]
  - Sedation [Unknown]
  - Off label use [Unknown]

NARRATIVE: CASE EVENT DATE: 201908
